FAERS Safety Report 7933902-X (Version None)
Quarter: 2011Q4

REPORT INFORMATION
  Report Type: 
  Country: None (occurrence: None)
  Receive Date: 20111122
  Receipt Date: 20111116
  Transmission Date: 20120403
  Serious: Yes (Hospitalization)
  Sender: FDA-Public Use
  Company Number: FR-SANOFI-AVENTIS-2011SA075625

PATIENT
  Age: 60 Year
  Sex: Male
  Weight: 85 kg

DRUGS (9)
  1. LIPUR [Concomitant]
  2. NEBIVOLOL HCL [Concomitant]
  3. IBUPROFEN (ADVIL) [Suspect]
     Route: 048
     Dates: start: 20110919, end: 20110924
  4. GLUCOPHAGE [Concomitant]
  5. CIPROFLOXACIN [Concomitant]
     Dates: start: 20110922, end: 20110928
  6. AMLODIPINE [Suspect]
     Route: 048
     Dates: start: 20110924, end: 20110928
  7. AMOXICILLIN [Concomitant]
     Dates: start: 20110919, end: 20110922
  8. CEFPODOXIME PROXETIL [Concomitant]
     Dates: start: 20110922, end: 20110928
  9. INDAPAMIDE [Suspect]
     Route: 048
     Dates: end: 20110928

REACTIONS (2)
  - PNEUMONIA [None]
  - RENAL FAILURE ACUTE [None]
